FAERS Safety Report 17295372 (Version 1)
Quarter: 2020Q1

REPORT INFORMATION
  Report Type: Spontaneous
  Country: US (occurrence: US)
  Receive Date: 20200121
  Receipt Date: 20200121
  Transmission Date: 20200409
  Serious: No
  Sender: FDA-Public Use
  Company Number: US-CELGENEUS-USA-20200104717

PATIENT
  Sex: Male

DRUGS (5)
  1. OTEZLA [Suspect]
     Active Substance: APREMILAST
     Indication: CHRONIC SINUSITIS
  2. OTEZLA [Suspect]
     Active Substance: APREMILAST
     Indication: CHRONIC SINUSITIS
  3. OTEZLA [Suspect]
     Active Substance: APREMILAST
     Indication: NASAL CONGESTION
  4. OTEZLA [Suspect]
     Active Substance: APREMILAST
     Indication: UPPER-AIRWAY COUGH SYNDROME
  5. OTEZLA [Suspect]
     Active Substance: APREMILAST
     Indication: TYPE IIA HYPERLIPIDAEMIA
     Dosage: 60 MILLIGRAM
     Route: 048

REACTIONS (1)
  - Meniscus injury [Unknown]
